FAERS Safety Report 8849452 (Version 2)
Quarter: 2013Q1

REPORT INFORMATION
  Report Type: Spontaneous
  Country: US (occurrence: US)
  Receive Date: 20121019
  Receipt Date: 20130212
  Transmission Date: 20140127
  Serious: Yes (Other)
  Sender: FDA-Public Use
  Company Number: US-PFIZER INC-2012260170

PATIENT
  Sex: Female

DRUGS (1)
  1. CHANTIX [Suspect]
     Indication: SMOKING CESSATION THERAPY
     Dosage: UNK
     Dates: start: 2007

REACTIONS (10)
  - Suicidal ideation [Unknown]
  - Injury [Not Recovered/Not Resolved]
  - Mental disorder [Not Recovered/Not Resolved]
  - Weight decreased [Unknown]
  - Insomnia [Unknown]
  - Job dissatisfaction [Not Recovered/Not Resolved]
  - White blood cell count increased [Unknown]
  - Quality of life decreased [Unknown]
  - Pain [Unknown]
  - Abnormal behaviour [Unknown]
